FAERS Safety Report 9009766 (Version 3)
Quarter: 2013Q1

REPORT INFORMATION
  Report Type: Report from Study
  Country: CH (occurrence: CH)
  Receive Date: 20130110
  Receipt Date: 20130118
  Transmission Date: 20140127
  Serious: Yes (Hospitalization)
  Sender: FDA-Public Use
  Company Number: CH-ROCHE-1177508

PATIENT
  Age: 42 Year
  Sex: Female
  Weight: 72 kg

DRUGS (4)
  1. KEPPRA [Concomitant]
     Indication: EPILEPSY
     Route: 065
     Dates: start: 20120521
  2. DAFALGAN [Concomitant]
     Indication: HEADACHE
  3. PLACEBO [Suspect]
     Indication: GLIOBLASTOMA
     Dosage: DATE OF MOST RECENT DOSE: 20/DEC/2012, MOST RECENT DOSE: 1065 MG
     Route: 042
     Dates: start: 20121220
  4. BEVACIZUMAB [Suspect]
     Indication: GLIOBLASTOMA
     Dosage: DATE OF MOST RECENT DOSE: 20/DEC/2012, MOST RECENT DOSE: 1065 MG
     Route: 042
     Dates: start: 20121220

REACTIONS (1)
  - Epilepsy [Recovered/Resolved]
